FAERS Safety Report 14598398 (Version 1)
Quarter: 2018Q1

REPORT INFORMATION
  Report Type: Spontaneous
  Country: PT (occurrence: PT)
  Receive Date: 20180305
  Receipt Date: 20180305
  Transmission Date: 20180509
  Serious: Yes (Other)
  Sender: FDA-Public Use
  Company Number: PT-MYLANLABS-2018M1013519

PATIENT
  Age: 53 Year
  Sex: Male
  Weight: 89 kg

DRUGS (4)
  1. ROSUVASTATIN MYLAN 10MG FILM-COATED TABLETS [Suspect]
     Active Substance: ROSUVASTATIN CALCIUM
     Indication: MYOCARDIAL INFARCTION
     Dosage: 1 DF, QD AT DINNER
     Route: 048
     Dates: start: 20180208, end: 20180218
  2. FLINDIX [Concomitant]
     Indication: MYOCARDIAL INFARCTION
     Dosage: 1 DF, HS
     Route: 048
     Dates: start: 201406
  3. NEBIVOLOL                          /01339102/ [Concomitant]
     Active Substance: NEBIVOLOL
     Indication: ARRHYTHMIA
     Dosage: 1.25 MG, QD
     Route: 048
     Dates: start: 201406
  4. ASPIRINA GR [Concomitant]
     Indication: MYOCARDIAL INFARCTION
     Dosage: 1 DF, HS
     Route: 048
     Dates: start: 201406

REACTIONS (1)
  - Arrhythmia [Recovered/Resolved]

NARRATIVE: CASE EVENT DATE: 201802
